FAERS Safety Report 18755613 (Version 1)
Quarter: 2021Q1

REPORT INFORMATION
  Report Type: Spontaneous
  Country: US (occurrence: US)
  Receive Date: 20210115
  Receipt Date: 20210115
  Transmission Date: 20210419
  Serious: Yes (Other)
  Sender: FDA-Public Use
  Company Number: None

PATIENT
  Age: 50 Year
  Sex: Female
  Weight: 72 kg

DRUGS (1)
  1. ZYRTEC [Suspect]
     Active Substance: CETIRIZINE HYDROCHLORIDE
     Indication: SINUSITIS
     Dates: start: 20010101

REACTIONS (5)
  - Withdrawal syndrome [None]
  - Weight decreased [None]
  - Arthralgia [None]
  - Sinusitis [None]
  - Pruritus [None]

NARRATIVE: CASE EVENT DATE: 20200101
